FAERS Safety Report 5852306-7 (Version None)
Quarter: 2008Q3

REPORT INFORMATION
  Report Type: 
  Country: None (occurrence: None)
  Receive Date: 20080821
  Receipt Date: 20080808
  Transmission Date: 20090109
  Serious: Yes (Hospitalization)
  Sender: FDA-Public Use
  Company Number: CA-ELI_LILLY_AND_COMPANY-CA200808001927

PATIENT
  Age: 61 Year
  Sex: Male

DRUGS (2)
  1. ZYPREXA [Suspect]
     Dosage: 30 MG, UNK
  2. ZYPREXA [Suspect]
     Dosage: 25 MG, UNK

REACTIONS (3)
  - ERECTILE DYSFUNCTION [None]
  - HOSPITALISATION [None]
  - OVERDOSE [None]
